FAERS Safety Report 9827413 (Version 2)
Quarter: 2014Q1

REPORT INFORMATION
  Report Type: Spontaneous
  Country: US (occurrence: US)
  Receive Date: 20140117
  Receipt Date: 20140117
  Transmission Date: 20141002
  Serious: Yes (Other)
  Sender: FDA-Public Use
  Company Number: US-GE HEALTHCARE MEDICAL DIAGNOSTICS-OSCN-PR-0906S-0294

PATIENT
  Age: 49 Year
  Sex: Male

DRUGS (1)
  1. GADOLINIUM (UNSPECIFIED) [Suspect]
     Indication: PRODUCT USED FOR UNKNOWN INDICATION
     Dosage: MULTIPLE UNKNOWN ADMINISTRATIONS SINCE 4-JUN-1994

REACTIONS (1)
  - Nephrogenic systemic fibrosis [Not Recovered/Not Resolved]
